FAERS Safety Report 26076929 (Version 1)
Quarter: 2025Q4

REPORT INFORMATION
  Report Type: Spontaneous
  Country: US (occurrence: None)
  Receive Date: 20251121
  Receipt Date: 20251121
  Transmission Date: 20260118
  Serious: Yes (Life-Threatening, Other)
  Sender: FDA-CTU
  Company Number: None

PATIENT
  Age: 49 Year
  Sex: Female
  Weight: 112.6 kg

DRUGS (4)
  1. TALQUETAMAB [Suspect]
     Active Substance: TALQUETAMAB
  2. TALQUETAMAB [Concomitant]
     Active Substance: TALQUETAMAB
     Dates: start: 20251114, end: 20251114
  3. TALQUETAMAB [Concomitant]
     Active Substance: TALQUETAMAB
     Dates: start: 20251117, end: 20251117
  4. TALQUETAMAB [Concomitant]
     Active Substance: TALQUETAMAB
     Dates: start: 20251120, end: 20251120

REACTIONS (1)
  - Immune effector cell-associated neurotoxicity syndrome [None]

NARRATIVE: CASE EVENT DATE: 20251120
